FAERS Safety Report 9143626 (Version 1)
Quarter: 2013Q1

REPORT INFORMATION
  Report Type: Spontaneous
  Country: GB (occurrence: GB)
  Receive Date: 20130306
  Receipt Date: 20130306
  Transmission Date: 20140127
  Serious: Yes (Death, Other)
  Sender: FDA-Public Use
  Company Number: GB-ROCHE-1197722

PATIENT
  Age: 76 Year
  Sex: Female
  Weight: 48 kg

DRUGS (14)
  1. MABTHERA [Suspect]
     Indication: RHEUMATOID ARTHRITIS
     Route: 042
     Dates: start: 201210
  2. BISOPROLOL [Concomitant]
     Route: 065
  3. BUPRENORPHINE [Concomitant]
     Route: 062
  4. CITALOPRAM [Concomitant]
     Route: 065
  5. DIGOXIN [Concomitant]
     Route: 065
  6. FOLIC ACID [Concomitant]
     Route: 065
  7. FRUSEMIDE [Concomitant]
     Route: 065
  8. HYDROXYCHLOROQUINE [Concomitant]
     Route: 065
  9. LOSARTAN [Concomitant]
     Route: 065
  10. METHOTREXATE [Concomitant]
     Route: 065
  11. PARACETAMOL [Concomitant]
     Route: 065
  12. SPIRONOLACTONE [Concomitant]
     Route: 065
  13. SULPHASALAZINE [Concomitant]
     Route: 065
  14. WARFARIN [Concomitant]

REACTIONS (5)
  - Cardiac failure [Fatal]
  - General physical health deterioration [Not Recovered/Not Resolved]
  - Dyspnoea [Not Recovered/Not Resolved]
  - Pneumonia [Not Recovered/Not Resolved]
  - Respiratory failure [Not Recovered/Not Resolved]
